FAERS Safety Report 6602021-7 (Version None)
Quarter: 2010Q1

REPORT INFORMATION
  Report Type: 
  Country: None (occurrence: None)
  Receive Date: 20100225
  Receipt Date: 20100216
  Transmission Date: 20100710
  Serious: Yes (Other)
  Sender: FDA-Public Use
  Company Number: US-JNJFOC-20100210364

PATIENT
  Sex: Female
  Weight: 59.1 kg

DRUGS (5)
  1. REMICADE [Suspect]
     Indication: CROHN'S DISEASE
     Route: 042
  2. REMICADE [Suspect]
     Route: 042
  3. REMICADE [Suspect]
     Route: 042
  4. REMICADE [Suspect]
     Route: 042
  5. METHOTREXATE [Concomitant]
     Indication: CROHN'S DISEASE

REACTIONS (4)
  - DEEP VEIN THROMBOSIS [None]
  - DRUG EFFECT DECREASED [None]
  - HYPERSENSITIVITY [None]
  - UPPER LIMB FRACTURE [None]
